FAERS Safety Report 9961386 (Version 1)
Quarter: 2014Q1

REPORT INFORMATION
  Report Type: Report from Study
  Country: US (occurrence: US)
  Receive Date: 20140305
  Receipt Date: 20140305
  Transmission Date: 20141002
  Serious: Yes (Other)
  Sender: FDA-Public Use
  Company Number: PHEH2014US003730

PATIENT
  Sex: Female
  Weight: 64.8 kg

DRUGS (6)
  1. TOBI PODHALER [Suspect]
     Dosage: 4 DF, BID
     Dates: start: 201308
  2. AQUADEKS [Concomitant]
  3. LANTUS [Concomitant]
     Dosage: 10 U, UNK
  4. APIDRA [Concomitant]
     Dosage: 1 U, UNK
  5. PRENATAL [Concomitant]
  6. VITAMIN D [Concomitant]

REACTIONS (1)
  - Hearing impaired [Unknown]
